FAERS Safety Report 4289194-9 (Version None)
Quarter: 2004Q1

REPORT INFORMATION
  Report Type: 
  Country: None (occurrence: None)
  Receive Date: 20040206
  Receipt Date: 20040128
  Transmission Date: 20041129
  Serious: Yes (Other)
  Sender: FDA-Public Use
  Company Number: 2003037220

PATIENT
  Age: 74 Year
  Sex: Male
  Weight: 76.2043 kg

DRUGS (6)
  1. NEURONTIN [Suspect]
     Indication: TRIGEMINAL NEURALGIA
     Dosage: 900 MG TID ORAL
     Route: 048
     Dates: start: 20030804, end: 20030807
  2. LEVOTHYROXINE SODIUM [Concomitant]
  3. EZETIMIBE [Concomitant]
  4. CEPHALEXIN [Concomitant]
  5. ETODOLAC [Concomitant]
  6. PETHIDINE HYDROCHLORIDE [Concomitant]

REACTIONS (5)
  - ACUTE SINUSITIS [None]
  - C-REACTIVE PROTEIN INCREASED [None]
  - DIPLOPIA [None]
  - RED BLOOD CELL SEDIMENTATION RATE INCREASED [None]
  - STRABISMUS [None]
